FAERS Safety Report 18118004 (Version 1)
Quarter: 2020Q3

REPORT INFORMATION
  Report Type: Spontaneous
  Country: US (occurrence: US)
  Receive Date: 20200806
  Receipt Date: 20200806
  Transmission Date: 20201103
  Serious: Yes (Hospitalization)
  Sender: FDA-Public Use
  Company Number: US-KARYOPHARM THERAPEUTICS, INC.-2020KPT000870

PATIENT

DRUGS (2)
  1. XPOVIO [Suspect]
     Active Substance: SELINEXOR
     Indication: PLASMA CELL MYELOMA
     Dosage: 80 MG, WEEKLY
     Route: 048
     Dates: start: 20200611, end: 20200722
  2. XPOVIO [Suspect]
     Active Substance: SELINEXOR
     Dosage: 60 UNK
     Route: 048
     Dates: start: 20200723, end: 20200723

REACTIONS (1)
  - Bacteraemia [Unknown]

NARRATIVE: CASE EVENT DATE: 20200724
